FAERS Safety Report 4480525-3 (Version None)
Quarter: 2004Q4

REPORT INFORMATION
  Report Type: 
  Country: None (occurrence: None)
  Receive Date: 20041019
  Receipt Date: 20041006
  Transmission Date: 20050328
  Serious: Yes (Hospitalization)
  Sender: FDA-Public Use
  Company Number: 2004072610

PATIENT
  Age: 82 Year
  Sex: Female

DRUGS (6)
  1. QUINAPRIL HCL [Suspect]
     Indication: HYPERTENSION
     Dosage: (DAILY) ,ORAL
     Route: 048
     Dates: start: 20030724, end: 20040819
  2. GLICLAZIDE            (GLICLAZIDE) [Suspect]
     Indication: DIABETES MELLITUS
     Dosage: 40 MG (DAILY), ORAL
     Route: 048
     Dates: start: 20030724, end: 20040819
  3. LOSARTAN POTASSIUM [Suspect]
     Indication: HYPERTENSION
     Dosage: 25 MG (DAILY), ORAL
     Route: 048
     Dates: start: 20040506, end: 20040819
  4. EFONIDIPINE HYDROCHLORIDE          (EFONIDIPINE HYDROCHLORIDE) [Suspect]
     Indication: HYPERTENSION
     Dosage: 20 MG , ORAL
     Route: 048
     Dates: start: 20010819, end: 20040830
  5. EBASTINE [Concomitant]
  6. RILMAZAFONE       (RILMAZAFONE) [Concomitant]

REACTIONS (10)
  - BLOOD POTASSIUM DECREASED [None]
  - BLOOD PRESSURE ABNORMAL [None]
  - DERMATITIS EXFOLIATIVE [None]
  - EOSINOPHIL COUNT INCREASED [None]
  - HAEMORRHAGE SUBCUTANEOUS [None]
  - HEPATIC FUNCTION ABNORMAL [None]
  - LIVER DISORDER [None]
  - LYMPHOCYTE COUNT DECREASED [None]
  - RED BLOOD CELL COUNT DECREASED [None]
  - REFUSAL OF TREATMENT BY PATIENT [None]
